FAERS Safety Report 6710207-6 (Version None)
Quarter: 2010Q2

REPORT INFORMATION
  Report Type: 
  Country: None (occurrence: None)
  Receive Date: 20100430
  Receipt Date: 20100423
  Transmission Date: 20101027
  Serious: Yes (Other)
  Sender: FDA-Public Use
  Company Number: 2010SP018647

PATIENT
  Age: 41 Year
  Sex: Female

DRUGS (4)
  1. SAPHRIS [Suspect]
     Indication: BIPOLAR DISORDER
     Dosage: 5 MG
     Dates: start: 20100122
  2. TOPAMAX [Suspect]
     Indication: MIGRAINE
  3. LAMICTAL [Concomitant]
  4. LEXAPRO [Concomitant]

REACTIONS (5)
  - BIPOLAR DISORDER [None]
  - CONDITION AGGRAVATED [None]
  - HEMIPLEGIA [None]
  - HYPOAESTHESIA [None]
  - MIGRAINE [None]
